FAERS Safety Report 6031468-5 (Version None)
Quarter: 2008Q4

REPORT INFORMATION
  Report Type: 
  Country: None (occurrence: None)
  Receive Date: 20081231
  Receipt Date: 20080814
  Transmission Date: 20090506
  Serious: Yes (Other)
  Sender: FDA-Public Use
  Company Number: 20080240 /

PATIENT
  Age: 60 Year
  Sex: Female

DRUGS (1)
  1. VERAPAMIL HCL [Suspect]

REACTIONS (1)
  - ATRIOVENTRICULAR BLOCK [None]
